FAERS Safety Report 6793257-3 (Version None)
Quarter: 2010Q2

REPORT INFORMATION
  Report Type: 
  Country: None (occurrence: None)
  Receive Date: 20100624
  Receipt Date: 20091029
  Transmission Date: 20101027
  Serious: Yes (Other)
  Sender: FDA-Public Use
  Company Number: US-MYLANLABS-2009S1017509

PATIENT
  Age: 34 Year
  Sex: Male
  Weight: 108.9 kg

DRUGS (14)
  1. CLOZAPINE [Suspect]
     Indication: SCHIZOAFFECTIVE DISORDER
     Route: 048
     Dates: start: 20090923, end: 20090929
  2. OXCARBAZEPINE [Suspect]
  3. TACROLIMUS [Suspect]
  4. MYCOPHENOLATE MOFETIL [Suspect]
  5. PERPHENAZINE [Suspect]
  6. FLUPHENAZINE [Concomitant]
     Dosage: 15MG QD ON 09/23/2009, TAPERED DOWN TO 5 MG QD BY DISCHARGE.
  7. GEMFIBROZIL [Concomitant]
  8. METOPROLOL [Concomitant]
  9. NIACIN [Concomitant]
  10. OMEPRAZOLE [Concomitant]
  11. PIOGLITAZONE [Concomitant]
  12. BENZTROPINE MESYLATE [Concomitant]
  13. ASPIRIN [Concomitant]
  14. NICOTINE [Concomitant]

REACTIONS (1)
  - GRANULOCYTOPENIA [None]
